FAERS Safety Report 20861714 (Version 2)
Quarter: 2022Q3

REPORT INFORMATION
  Report Type: Report from Study
  Country: FR (occurrence: FR)
  Receive Date: 20220523
  Receipt Date: 20220701
  Transmission Date: 20221027
  Serious: Yes (Other)
  Sender: FDA-Public Use
  Company Number: FR-MYLANLABS-2022M1036729

PATIENT
  Age: 25 Year
  Sex: Female

DRUGS (1)
  1. HULIO [Suspect]
     Active Substance: ADALIMUMAB-FKJP
     Indication: Colitis ulcerative
     Dosage: 80 MILLIGRAM
     Route: 065
     Dates: start: 20220511

REACTIONS (4)
  - Haematochezia [Unknown]
  - Asthenia [Not Recovered/Not Resolved]
  - Infrequent bowel movements [Unknown]
  - Feeling abnormal [Unknown]

NARRATIVE: CASE EVENT DATE: 20220511
